FAERS Safety Report 8446212-1 (Version None)
Quarter: 2012Q2

REPORT INFORMATION
  Report Type: 
  Country: None (occurrence: None)
  Receive Date: 20120618
  Receipt Date: 20120611
  Transmission Date: 20120825
  Serious: Yes (Death, Hospitalization, Other)
  Sender: FDA-Public Use
  Company Number: US-TEVA-342791USA

PATIENT
  Age: 37 Year
  Sex: Male

DRUGS (2)
  1. PROPOFOL [Suspect]
     Indication: SEDATIVE THERAPY
     Dosage: INFUSION
     Route: 050
  2. BUPIVACAINE HCL [Interacting]
     Indication: NERVE BLOCK
     Route: 050

REACTIONS (7)
  - DRUG ADMINISTRATION ERROR [None]
  - CARDIAC ARREST [None]
  - TOXICITY TO VARIOUS AGENTS [None]
  - ANAPHYLACTIC REACTION [None]
  - BRADYCARDIA [None]
  - CONVULSION [None]
  - POTENTIATING DRUG INTERACTION [None]
